FAERS Safety Report 13193944 (Version 1)
Quarter: 2017Q1

REPORT INFORMATION
  Report Type: Spontaneous
  Country: SE (occurrence: SE)
  Receive Date: 20170207
  Receipt Date: 20170207
  Transmission Date: 20170428
  Serious: Yes (Hospitalization)
  Sender: FDA-Public Use
  Company Number: SE-MEDA-2017020009

PATIENT
  Age: 72 Year
  Sex: Male

DRUGS (4)
  1. STILNOCT [Concomitant]
     Active Substance: ZOLPIDEM TARTRATE
  2. SILDENAFIL. [Concomitant]
     Active Substance: SILDENAFIL
  3. BONDIL 1000 MCG URETRALSTIFT (BATCH: 502327) [Suspect]
     Active Substance: ALPROSTADIL
     Route: 066
     Dates: start: 201507
  4. OMEPRAZOL [Concomitant]
     Active Substance: OMEPRAZOLE

REACTIONS (1)
  - Subdural haematoma [Unknown]

NARRATIVE: CASE EVENT DATE: 20160129
